FAERS Safety Report 6406164-2 (Version None)
Quarter: 2009Q4

REPORT INFORMATION
  Report Type: 
  Country: None (occurrence: None)
  Receive Date: 20091019
  Receipt Date: 20091012
  Transmission Date: 20100525
  Serious: Yes (Hospitalization, Other)
  Sender: FDA-Public Use
  Company Number: FR-ROXANE LABORATORIES, INC.-2009-RO-01047RO

PATIENT
  Age: 34 Year
  Sex: Male

DRUGS (8)
  1. LITHIUM CARBONATE [Suspect]
     Route: 048
  2. LITHIUM CARBONATE [Suspect]
     Route: 048
  3. PRAZEPAM [Suspect]
     Route: 048
  4. MIDAZOLAM HCL [Concomitant]
     Indication: SEDATION
  5. GLUCOSE SALINE SOLUTION [Concomitant]
     Indication: FLUID REPLACEMENT
     Route: 042
  6. GLUCOSE SALINE SOLUTION [Concomitant]
     Indication: DRUG TOXICITY
  7. SALINE [Concomitant]
     Indication: FLUID REPLACEMENT
     Route: 042
  8. SALINE [Concomitant]
     Indication: DRUG TOXICITY

REACTIONS (14)
  - AGITATION [None]
  - DIARRHOEA [None]
  - DRUG TOXICITY [None]
  - DYSARTHRIA [None]
  - HALLUCINATION, VISUAL [None]
  - HOFFMANN'S SIGN [None]
  - HYPERREFLEXIA [None]
  - MIOSIS [None]
  - MYOCLONUS [None]
  - NAUSEA [None]
  - NEPHROGENIC DIABETES INSIPIDUS [None]
  - PSYCHOMOTOR RETARDATION [None]
  - SUICIDE ATTEMPT [None]
  - TACHYCARDIA [None]
